FAERS Safety Report 9258398 (Version 1)
Quarter: 2013Q2

REPORT INFORMATION
  Report Type: Spontaneous
  Country: GB (occurrence: GB)
  Receive Date: 20130426
  Receipt Date: 20130426
  Transmission Date: 20140414
  Serious: Yes (Hospitalization)
  Sender: FDA-Public Use
  Company Number: PHHY2013GB038212

PATIENT
  Age: 47 Year
  Sex: Male

DRUGS (2)
  1. AMITRIPTYLINE [Suspect]
  2. ALCOHOL [Concomitant]

REACTIONS (4)
  - Blood antidiuretic hormone increased [Unknown]
  - Coma scale abnormal [Unknown]
  - Overdose [Unknown]
  - Chromaturia [Unknown]
